FAERS Safety Report 25051482 (Version 4)
Quarter: 2025Q3

REPORT INFORMATION
  Report Type: Spontaneous
  Country: JP (occurrence: JP)
  Receive Date: 20250307
  Receipt Date: 20250818
  Transmission Date: 20251020
  Serious: Yes (Death, Other)
  Sender: BAXTER
  Company Number: JP-shionogi-202400004379

PATIENT
  Age: 38 Year
  Sex: Female
  Weight: 80.4 kg

DRUGS (13)
  1. CYCLOPHOSPHAMIDE [Suspect]
     Active Substance: CYCLOPHOSPHAMIDE
     Indication: Breast cancer stage IV
     Route: 048
     Dates: start: 20240628, end: 20241220
  2. RINDERON VG [Suspect]
     Active Substance: BETAMETHASONE VALERATE\GENTAMICIN SULFATE
     Indication: Product used for unknown indication
     Route: 065
  3. BROTIZOLAM [Concomitant]
     Active Substance: BROTIZOLAM
     Indication: Product used for unknown indication
     Route: 065
  4. OLANZAPINE [Concomitant]
     Active Substance: OLANZAPINE
     Indication: Product used for unknown indication
     Route: 065
  5. ZOLPIDEM TARTRATE [Concomitant]
     Active Substance: ZOLPIDEM TARTRATE
     Indication: Product used for unknown indication
     Route: 065
  6. LANSOPRAZOLE [Concomitant]
     Active Substance: LANSOPRAZOLE
     Indication: Product used for unknown indication
     Route: 065
  7. CALCIUM CARBONATE\CHOLECALCIFEROL\MAGNESIUM CARBONATE [Concomitant]
     Active Substance: CALCIUM CARBONATE\CHOLECALCIFEROL\MAGNESIUM CARBONATE
     Indication: Product used for unknown indication
     Route: 065
  8. HERBALS [Concomitant]
     Active Substance: HERBALS
     Indication: Product used for unknown indication
     Route: 065
  9. AUGMENTIN [Concomitant]
     Active Substance: AMOXICILLIN\CLAVULANATE POTASSIUM
     Indication: Product used for unknown indication
     Route: 065
  10. Choreito [Concomitant]
     Indication: Product used for unknown indication
     Route: 065
  11. PYRIDOXAL [Concomitant]
     Active Substance: PYRIDOXAL
     Indication: Product used for unknown indication
     Route: 065
  12. TRAMCET [Concomitant]
     Active Substance: ACETAMINOPHEN\TRAMADOL
     Indication: Product used for unknown indication
     Route: 065
  13. DENOSUMAB [Concomitant]
     Active Substance: DENOSUMAB
     Indication: Product used for unknown indication
     Route: 065
     Dates: end: 20241021

REACTIONS (11)
  - Cystitis haemorrhagic [Fatal]
  - Dysuria [Fatal]
  - Urinary retention [Fatal]
  - Haematuria [Fatal]
  - Urinary retention [Fatal]
  - Bladder pain [Fatal]
  - Cystitis noninfective [Fatal]
  - Renal impairment [Fatal]
  - Pyrexia [Fatal]
  - Jaundice [Unknown]
  - Anaemia [Unknown]

NARRATIVE: CASE EVENT DATE: 20241208
